FAERS Safety Report 25312941 (Version 2)
Quarter: 2025Q2

REPORT INFORMATION
  Report Type: Other
  Country: US (occurrence: US)
  Receive Date: 20250514
  Receipt Date: 20250623
  Transmission Date: 20250716
  Serious: No
  Sender: TRAVERE THERAPEUTICS
  Company Number: US-TRAVERE-2025TVT00646

PATIENT
  Sex: Male

DRUGS (2)
  1. FILSPARI [Suspect]
     Active Substance: SPARSENTAN
     Indication: IgA nephropathy
     Route: 048
  2. FILSPARI [Suspect]
     Active Substance: SPARSENTAN
     Dosage: TAKE 2 (200MG) TABS DAILY
     Route: 048

REACTIONS (4)
  - Flatulence [Unknown]
  - Somnolence [Unknown]
  - Wrong technique in product usage process [Unknown]
  - Dyspepsia [Unknown]
